FAERS Safety Report 6909300-4 (Version None)
Quarter: 2010Q3

REPORT INFORMATION
  Report Type: 
  Country: None (occurrence: None)
  Receive Date: 20100805
  Receipt Date: 20100723
  Transmission Date: 20110219
  Serious: Yes (Hospitalization, Other)
  Sender: FDA-Public Use
  Company Number: PHHY2010JP37868

PATIENT
  Sex: Female

DRUGS (4)
  1. TEGRETOL [Suspect]
     Indication: EPILEPSY
     Dosage: 0.1 G, TWICE DAILY
     Route: 048
     Dates: start: 20090624
  2. LAXOBERON [Concomitant]
     Indication: CONSTIPATION
     Dosage: 3 DF, UNK
     Route: 048
     Dates: start: 20091023, end: 20091119
  3. POSTERISAN [Concomitant]
     Dosage: UNK
  4. SHOUKENCHUUTOU [Concomitant]
     Indication: CONSTIPATION
     Dosage: 2.4 G, UNK
     Route: 048
     Dates: start: 20091120, end: 20091125

REACTIONS (11)
  - BLOOD PHOSPHORUS DECREASED [None]
  - BRUXISM [None]
  - CYANOSIS [None]
  - DECREASED EYE CONTACT [None]
  - FEBRILE CONVULSION [None]
  - HYPOCALCAEMIA [None]
  - HYPOPARATHYROIDISM [None]
  - LOSS OF CONSCIOUSNESS [None]
  - PYREXIA [None]
  - SOMNOLENCE [None]
  - STATUS EPILEPTICUS [None]
